FAERS Safety Report 10046624 (Version 4)
Quarter: 2014Q2

REPORT INFORMATION
  Report Type: Other
  Country: CO (occurrence: CO)
  Receive Date: 20140331
  Receipt Date: 20140415
  Transmission Date: 20141212
  Serious: Yes (Life-Threatening, Hospitalization)
  Sender: FDA-Public Use
  Company Number: CO-SHIRE-CO201400806

PATIENT
  Age: 19 Year
  Sex: Male
  Weight: 17 kg

DRUGS (1)
  1. ELAPRASE [Suspect]
     Indication: MUCOPOLYSACCHARIDOSIS II
     Dosage: 9 MG, 1X/WEEK
     Route: 041
     Dates: start: 20131011

REACTIONS (11)
  - Respiratory arrest [Recovering/Resolving]
  - Foreign body aspiration [Recovering/Resolving]
  - Painful respiration [Recovering/Resolving]
  - Bronchitis [Recovering/Resolving]
  - Inflammation [Recovering/Resolving]
  - Decreased appetite [Not Recovered/Not Resolved]
  - Weight decreased [Recovering/Resolving]
  - Urine output decreased [Recovered/Resolved]
  - Abdominal pain [Not Recovered/Not Resolved]
  - Oedema [Recovered/Resolved]
  - Infusion related reaction [Recovering/Resolving]
